FAERS Safety Report 18701019 (Version 3)
Quarter: 2021Q1

REPORT INFORMATION
  Report Type: Spontaneous
  Country: NL (occurrence: IE)
  Receive Date: 20210105
  Receipt Date: 20210310
  Transmission Date: 20210419
  Serious: Yes (Life-Threatening, Hospitalization, Other)
  Sender: FDA-Public Use
  Company Number: IE-FRESENIUS KABI-FK202013918

PATIENT
  Age: 38 Year
  Sex: Female
  Weight: 75 kg

DRUGS (7)
  1. FOLIC ACID. [Concomitant]
     Active Substance: FOLIC ACID
     Indication: INFERTILITY
     Dosage: UNKNOWN
     Route: 065
  2. DEXAMETHASONE. [Concomitant]
     Active Substance: DEXAMETHASONE
     Indication: INFERTILITY
     Dosage: UNKNOWN
     Route: 065
  3. INTRALIPID [Suspect]
     Active Substance: EGG PHOSPHOLIPIDS\GLYCERIN\SOYBEAN OIL
     Indication: OFF LABEL USE
     Dosage: ADMINISTERED AROUND 5 PM, 20 PERCENT 100ML, ONCE OFF IV INFUSION, DURATION 45 MIN.
     Route: 042
     Dates: start: 20201102
  4. INTRALIPID [Suspect]
     Active Substance: EGG PHOSPHOLIPIDS\GLYCERIN\SOYBEAN OIL
     Indication: INFERTILITY
  5. ACETYLSALICYLIC ACID [Concomitant]
     Active Substance: ASPIRIN
     Indication: INFERTILITY
     Dosage: UNKNOWN
     Route: 065
  6. PREDNISOLONE. [Concomitant]
     Active Substance: PREDNISOLONE
     Indication: INFERTILITY
     Dosage: UNKNOWN
     Route: 065
  7. ESTRADIOL. [Concomitant]
     Active Substance: ESTRADIOL
     Indication: INFERTILITY
     Route: 065

REACTIONS (17)
  - Fat overload syndrome [Recovering/Resolving]
  - Malaise [Recovering/Resolving]
  - Bacterial sepsis [Recovering/Resolving]
  - Suspected product contamination [Unknown]
  - Coagulopathy [Recovering/Resolving]
  - Bacteraemia [Recovering/Resolving]
  - Off label use [Unknown]
  - Chest pain [Recovering/Resolving]
  - Condition aggravated [Recovering/Resolving]
  - Septic shock [Recovering/Resolving]
  - Thrombocytopenia [Recovering/Resolving]
  - Abdominal pain [Recovered/Resolved]
  - Feeling abnormal [Recovering/Resolving]
  - Pain [Recovering/Resolving]
  - Vomiting [Recovered/Resolved]
  - Anaemia [Recovering/Resolving]
  - Diarrhoea [Recovered/Resolved]

NARRATIVE: CASE EVENT DATE: 20201102
